FAERS Safety Report 12463427 (Version 1)
Quarter: 2016Q2

REPORT INFORMATION
  Report Type: Spontaneous
  Country: US (occurrence: None)
  Receive Date: 20160613
  Receipt Date: 20160613
  Transmission Date: 20160815
  Serious: Yes (Hospitalization, Disabling)
  Sender: FDA-Public Use
  Company Number: None

PATIENT
  Age: 70 Year
  Sex: Female
  Weight: 110.68 kg

DRUGS (14)
  1. SAXAGLIPTIN-METFORMIN [Concomitant]
  2. LACTOBACILLUS ACIDOPHILUS [Concomitant]
     Active Substance: LACTOBACILLUS ACIDOPHILUS
  3. CARVEDILOL. [Concomitant]
     Active Substance: CARVEDILOL
  4. CEFPODOXIME, 200 MG [Suspect]
     Active Substance: CEFPODOXIME
     Indication: POSTOPERATIVE CARE
     Route: 048
     Dates: start: 20160527, end: 20160602
  5. CEFPODOXIME, 200 MG [Suspect]
     Active Substance: CEFPODOXIME
     Indication: INFECTION PROPHYLAXIS
     Route: 048
     Dates: start: 20160527, end: 20160602
  6. INTERNAL CARDIAC DEFIBRILLATOR [Concomitant]
  7. FUROSEMIDE. [Concomitant]
     Active Substance: FUROSEMIDE
  8. SPIRONOLACTONE. [Concomitant]
     Active Substance: SPIRONOLACTONE
  9. VALSARTAN. [Concomitant]
     Active Substance: VALSARTAN
  10. VITAMIN D3 [Concomitant]
     Active Substance: CHOLECALCIFEROL
  11. CALCIUM CITRATE-VITAMIN D [Concomitant]
     Active Substance: CALCIUM CITRATE\VITAMIN D
  12. COLCHICINE. [Concomitant]
     Active Substance: COLCHICINE
  13. VITAMIN E [Concomitant]
     Active Substance: .ALPHA.-TOCOPHEROL
  14. OMEGA-3 FISH OILS [Concomitant]

REACTIONS (9)
  - Urinary tract infection [None]
  - Peripheral swelling [None]
  - Pain in extremity [None]
  - Hyperhidrosis [None]
  - Dyspnoea [None]
  - Chills [None]
  - Fatigue [None]
  - Pyrexia [None]
  - Dysuria [None]

NARRATIVE: CASE EVENT DATE: 20160602
